FAERS Safety Report 9498635 (Version 2)
Quarter: 2013Q3

REPORT INFORMATION
  Report Type: Spontaneous
  Country: US (occurrence: US)
  Receive Date: 20130904
  Receipt Date: 20130927
  Transmission Date: 20140515
  Serious: No
  Sender: FDA-Public Use
  Company Number: US-PFIZER INC-2013254711

PATIENT
  Age: 64 Year
  Sex: Female

DRUGS (5)
  1. NEURONTIN [Suspect]
     Dosage: UNK
  2. MORPHINE SULFATE [Suspect]
     Dosage: UNK
  3. OXYCODONE HYDROCHLORIDE [Suspect]
     Dosage: UNK
  4. CIPRO [Suspect]
     Dosage: UNK
  5. PERCOCET [Suspect]
     Dosage: UNK

REACTIONS (1)
  - Drug hypersensitivity [Unknown]
